FAERS Safety Report 8548099-5 (Version None)
Quarter: 2012Q3

REPORT INFORMATION
  Report Type: 
  Country: None (occurrence: None)
  Receive Date: 20120730
  Receipt Date: 20120724
  Transmission Date: 20120928
  Serious: Yes (Death)
  Sender: FDA-Public Use
  Company Number: US-AMGEN-USASP2012046275

PATIENT
  Age: 71 Year
  Sex: Male

DRUGS (2)
  1. NEULASTA [Suspect]
     Indication: NEUTROPENIA
     Dosage: UNK
     Dates: start: 20120216, end: 20120329
  2. ANTINEOPLASTIC AGENTS [Concomitant]
     Indication: LUNG NEOPLASM MALIGNANT

REACTIONS (1)
  - DEATH [None]
